FAERS Safety Report 4960800-6 (Version None)
Quarter: 2006Q2

REPORT INFORMATION
  Report Type: 
  Country: None (occurrence: None)
  Receive Date: 20060403
  Receipt Date: 20060327
  Transmission Date: 20061013
  Serious: Yes (Hospitalization)
  Sender: FDA-Public Use
  Company Number: US-BRISTOL-MYERS SQUIBB COMPANY-13328927

PATIENT
  Age: 72 Year
  Sex: Male
  Weight: 34 kg

DRUGS (19)
  1. ERBITUX [Suspect]
     Indication: NON-SMALL CELL LUNG CANCER
     Dosage: INITIATED ON 30-JAN-2006. DOSE DELAYED/OMITTED (DATE NOT REPORTED).
     Route: 042
     Dates: start: 20060101, end: 20060101
  2. CARBOPLATIN [Suspect]
     Indication: NON-SMALL CELL LUNG CANCER
     Dosage: INITIATED ON 06-FEB-2006.
     Route: 042
     Dates: start: 20060101, end: 20060101
  3. PACLITAXEL [Suspect]
     Indication: NON-SMALL CELL LUNG CANCER
     Dosage: INITIATED ON 06-FEB-2006.
     Route: 042
     Dates: start: 20060101, end: 20060101
  4. BISACODYL [Concomitant]
     Indication: CONSTIPATION
     Route: 048
  5. CAPSAICIN CREAM [Concomitant]
     Dosage: 0.025%.  APPLY LIBERAL AMOUNT TO AFFECTED AREA.
     Route: 061
  6. CARBAMIDE PEROXIDE [Concomitant]
     Dosage: 6.5% SOLUTION.  PLACE 2 DROPES IN EACH EAR DAIILY BEFORE PROCEDURE (IRRIGATION).
     Route: 001
  7. DEXTROMETHORPHAN HYDROBROMIDE [Concomitant]
     Indication: COUGH
     Route: 048
  8. FLUNISOLIDE [Concomitant]
     Dosage: 25 MCG. 2 SPRAYS IN EACH NOSTRIL DAILY.
  9. FOSINOPRIL SODIUM [Concomitant]
     Indication: BLOOD PRESSURE
     Route: 048
  10. HYDROCHLOROTHIAZIDE [Concomitant]
     Indication: BLOOD PRESSURE
     Route: 048
  11. IBUPROFEN [Concomitant]
     Indication: PAIN
     Dosage: ONE TABLET ORALLY EVERY 8-12 HOURS FOR PAIN.
     Route: 048
  12. MEGESTROL ACETATE [Concomitant]
     Route: 048
  13. METOPROLOL TARTRATE [Concomitant]
     Indication: BLOOD PRESSURE
     Route: 048
  14. NEPHRO-VITE [Concomitant]
     Route: 048
  15. OMEPRAZOLE [Concomitant]
     Route: 048
  16. ONDANSETRON [Concomitant]
     Indication: NAUSEA
     Dosage: ONE TABLET DAY 1 AT 4:00 AND DAYS 2-5 TAKE 1 TABLET EVERY 8 HOURS.
     Route: 048
  17. POTASSIUM CHLORIDE [Concomitant]
     Indication: MINERAL SUPPLEMENTATION
     Route: 048
  18. SIMVASTATIN [Concomitant]
     Indication: BLOOD CHOLESTEROL
     Dosage: AT BEDTIME.
     Route: 048
  19. TRAMADOL HCL [Concomitant]
     Route: 048

REACTIONS (4)
  - DEHYDRATION [None]
  - FATIGUE [None]
  - HYPOKALAEMIA [None]
  - PNEUMONITIS [None]
